FAERS Safety Report 21708093 (Version 1)
Quarter: 2022Q4

REPORT INFORMATION
  Report Type: Spontaneous
  Country: None (occurrence: DE)
  Receive Date: 20221209
  Receipt Date: 20221209
  Transmission Date: 20230113
  Serious: Yes (Other)
  Sender: FDA-Public Use
  Company Number: DE-Ascend Therapeutics US, LLC-2135742

PATIENT
  Age: 61 Year
  Sex: Female
  Weight: 56 kg

DRUGS (4)
  1. ESTROGEL [Suspect]
     Active Substance: ESTRADIOL
     Indication: Hot flush
     Route: 062
     Dates: start: 2006
  2. ESTROGEL [Suspect]
     Active Substance: ESTRADIOL
     Indication: Sleep disorder
  3. ESTROGEL [Suspect]
     Active Substance: ESTRADIOL
  4. ESTRADIOL [Suspect]
     Active Substance: ESTRADIOL
     Route: 062
     Dates: start: 2006

REACTIONS (3)
  - Carotid arteriosclerosis [Unknown]
  - Arteriosclerosis [Unknown]
  - Inappropriate schedule of product administration [Unknown]

NARRATIVE: CASE EVENT DATE: 20060101
